FAERS Safety Report 8889876 (Version 1)
Quarter: 2012Q4

REPORT INFORMATION
  Report Type: Spontaneous
  Country: US (occurrence: None)
  Receive Date: 20121105
  Receipt Date: 20121105
  Transmission Date: 20130627
  Serious: Yes (Life-Threatening)
  Sender: FDA-Public Use
  Company Number: None

PATIENT
  Age: 38 Year
  Sex: Female
  Weight: 74.84 kg

DRUGS (1)
  1. TRAZODONE [Suspect]
     Indication: INSOMNIA
     Dosage: 12.5 mg once po
     Route: 048
     Dates: start: 20110303, end: 20110303

REACTIONS (9)
  - Tachycardia [None]
  - Dyspnoea [None]
  - Panic reaction [None]
  - Anxiety [None]
  - Anxiety [None]
  - Nausea [None]
  - Tremor [None]
  - Muscular weakness [None]
  - Dystonia [None]
